FAERS Safety Report 17720845 (Version 1)
Quarter: 2020Q2

REPORT INFORMATION
  Report Type: Spontaneous
  Country: US (occurrence: US)
  Receive Date: 20200428
  Receipt Date: 20200428
  Transmission Date: 20200714
  Serious: No
  Sender: FDA-Public Use
  Company Number: US-ROCHE-2531791

PATIENT
  Age: 60 Year
  Sex: Male
  Weight: 84 kg

DRUGS (2)
  1. AVASTIN [Suspect]
     Active Substance: BEVACIZUMAB
     Indication: APPENDIX CANCER
     Route: 041
     Dates: start: 20191001
  2. DEXTROSE. [Concomitant]
     Active Substance: DEXTROSE
     Route: 042

REACTIONS (3)
  - Intentional product use issue [Unknown]
  - Off label use [Unknown]
  - No adverse event [Unknown]
